APPROVED DRUG PRODUCT: TROPICAMIDE
Active Ingredient: TROPICAMIDE
Strength: 1%
Dosage Form/Route: SOLUTION/DROPS;OPHTHALMIC
Application: A089172 | Product #001
Applicant: ALCON PHARMACEUTICALS LTD
Approved: Dec 28, 1990 | RLD: No | RS: No | Type: DISCN